FAERS Safety Report 19714944 (Version 2)
Quarter: 2022Q1

REPORT INFORMATION
  Report Type: Spontaneous
  Country: US (occurrence: US)
  Receive Date: 20210818
  Receipt Date: 20220309
  Transmission Date: 20220423
  Serious: Yes (Death, Hospitalization, Other)
  Sender: FDA-Public Use
  Company Number: US-GILEAD-2021-0544301

PATIENT
  Sex: Female

DRUGS (13)
  1. ATRIPLA [Suspect]
     Active Substance: EFAVIRENZ\EMTRICITABINE\TENOFOVIR DISOPROXIL FUMARATE
     Indication: HIV infection
     Dosage: UNK
     Route: 048
     Dates: start: 2006
  2. TRUVADA [Suspect]
     Active Substance: EMTRICITABINE\TENOFOVIR DISOPROXIL FUMARATE
     Indication: HIV infection
     Dosage: UNK
     Route: 048
     Dates: start: 2006
  3. VIREAD [Suspect]
     Active Substance: TENOFOVIR DISOPROXIL FUMARATE
     Indication: HIV infection
     Dosage: UNK
     Route: 048
     Dates: start: 2006, end: 201812
  4. OXYCODONE [Concomitant]
     Active Substance: OXYCODONE
  5. EPIVIR [Concomitant]
     Active Substance: LAMIVUDINE
  6. LEXIVA [Concomitant]
     Active Substance: FOSAMPRENAVIR CALCIUM
  7. NORVIR [Concomitant]
     Active Substance: RITONAVIR
  8. PREZISTA [Concomitant]
     Active Substance: DARUNAVIR ETHANOLATE
  9. RETROVIR [Concomitant]
     Active Substance: ZIDOVUDINE
  10. REYATAZ [Concomitant]
     Active Substance: ATAZANAVIR SULFATE
  11. SUSTIVA [Concomitant]
     Active Substance: EFAVIRENZ
  12. VIRAMUNE [Concomitant]
     Active Substance: NEVIRAPINE
  13. LIPITOR [Concomitant]
     Active Substance: ATORVASTATIN CALCIUM

REACTIONS (7)
  - Renal failure [Fatal]
  - Emotional distress [Unknown]
  - Anhedonia [Unknown]
  - Pain [Unknown]
  - Anxiety [Unknown]
  - Anaemia [Recovered/Resolved]
  - Renal impairment [Unknown]

NARRATIVE: CASE EVENT DATE: 20130101
